FAERS Safety Report 8607633-7 (Version None)
Quarter: 2012Q3

REPORT INFORMATION
  Report Type: 
  Country: None (occurrence: None)
  Receive Date: 20120809
  Receipt Date: 20120809
  Transmission Date: 20120928
  Serious: Yes (Hospitalization)
  Sender: FDA-Public Use
  Company Number: None

PATIENT
  Age: 60 Year
  Sex: Male
  Weight: 69.9 kg

DRUGS (1)
  1. INDOMETHACIN [Suspect]
     Dosage: 50 MG TID PO
     Route: 048
     Dates: start: 20110509, end: 20111201

REACTIONS (1)
  - GASTRIC ULCER HAEMORRHAGE [None]
